FAERS Safety Report 25500053 (Version 1)
Quarter: 2025Q3

REPORT INFORMATION
  Report Type: Spontaneous
  Country: US (occurrence: US)
  Receive Date: 20250701
  Receipt Date: 20250701
  Transmission Date: 20251021
  Serious: Yes (Other)
  Sender: SERVIER
  Company Number: US-SERVIER-S25009053

PATIENT

DRUGS (1)
  1. VORANIGO [Suspect]
     Active Substance: VORASIDENIB
     Indication: Brain neoplasm
     Route: 048
     Dates: start: 202409, end: 202412

REACTIONS (4)
  - Malignant neoplasm progression [Unknown]
  - Headache [Unknown]
  - Vomiting [Unknown]
  - Drug ineffective [Recovered/Resolved]

NARRATIVE: CASE EVENT DATE: 20240901
